FAERS Safety Report 12824873 (Version 1)
Quarter: 2016Q4

REPORT INFORMATION
  Report Type: Spontaneous
  Country: JP (occurrence: JP)
  Receive Date: 20161007
  Receipt Date: 20161007
  Transmission Date: 20170207
  Serious: Yes (Death)
  Sender: FDA-Public Use
  Company Number: PHHY2016JP135055

PATIENT
  Age: 78 Year
  Sex: Male

DRUGS (3)
  1. PIPERACILLIN [Suspect]
     Active Substance: PIPERACILLIN
     Indication: BRAIN ABSCESS
     Route: 042
  2. CEFTRIAXONE. [Suspect]
     Active Substance: CEFTRIAXONE
     Indication: BRAIN ABSCESS
     Route: 042
  3. MEROPENEM. [Suspect]
     Active Substance: MEROPENEM
     Indication: BRAIN ABSCESS
     Route: 042

REACTIONS (1)
  - Glioblastoma [Fatal]
